FAERS Safety Report 4584719-8 (Version None)
Quarter: 2005Q1

REPORT INFORMATION
  Report Type: 
  Country: None (occurrence: None)
  Receive Date: 20050217
  Receipt Date: 20040329
  Transmission Date: 20050727
  Serious: Yes (Other)
  Sender: FDA-Public Use
  Company Number: PHBS2004IE04311

PATIENT
  Age: 42 Year
  Sex: Female

DRUGS (2)
  1. DIOVAN [Suspect]
     Indication: HYPERTENSION
     Dosage: 80 MG/DAY
     Route: 048
  2. DIOVAN [Suspect]
     Dosage: 160 MG/DAY
     Route: 048

REACTIONS (1)
  - NIGHTMARE [None]
